FAERS Safety Report 7819510-X (Version None)
Quarter: 2011Q4

REPORT INFORMATION
  Report Type: 
  Country: None (occurrence: None)
  Receive Date: 20111018
  Receipt Date: 20110203
  Transmission Date: 20120403
  Serious: No
  Sender: FDA-Public Use
  Company Number: US-ASTRAZENECA-2011SE06122

PATIENT
  Age: 55 Year
  Sex: Female

DRUGS (1)
  1. SYMBICORT [Suspect]
     Dosage: 80/4.5, 2 PUFFS BID
     Route: 055
     Dates: start: 20101201

REACTIONS (2)
  - INCORRECT DOSE ADMINISTERED [None]
  - BLOOD PRESSURE FLUCTUATION [None]
